FAERS Safety Report 6880805-8 (Version None)
Quarter: 2010Q3

REPORT INFORMATION
  Report Type: 
  Country: None (occurrence: None)
  Receive Date: 20100728
  Receipt Date: 20100720
  Transmission Date: 20110219
  Serious: Yes (Hospitalization)
  Sender: FDA-Public Use
  Company Number: GB-BRISTOL-MYERS SQUIBB COMPANY-14927453

PATIENT
  Age: 75 Year
  Sex: Male

DRUGS (5)
  1. PLACEBO [Suspect]
     Indication: TYPE 2 DIABETES MELLITUS
     Route: 048
  2. METFORMIN HCL [Suspect]
     Indication: TYPE 2 DIABETES MELLITUS
     Dates: start: 20020523
  3. NOVOMIX [Suspect]
     Indication: TYPE 2 DIABETES MELLITUS
     Dates: start: 20051129
  4. SIMVASTATIN [Concomitant]
     Dates: start: 20001008
  5. ATENOLOL [Concomitant]
     Dates: start: 20001008

REACTIONS (2)
  - ANAEMIA VITAMIN B12 DEFICIENCY [None]
  - IRON DEFICIENCY ANAEMIA [None]
